FAERS Safety Report 10234940 (Version 1)
Quarter: 2014Q2

REPORT INFORMATION
  Report Type: Report from Study
  Country: BE (occurrence: None)
  Receive Date: 20140520
  Receipt Date: 20140520
  Transmission Date: 20141212
  Serious: Yes (Death, Hospitalization)
  Sender: FDA-Public Use
  Company Number: 2014PL000011

PATIENT
  Age: 62 Year
  Sex: Male

DRUGS (3)
  1. IMURAN (AZATHIOPRINE) [Suspect]
     Indication: IMMUNOSUPPRESSION
     Dates: start: 20100122
  2. CYCLOSPORINE [Suspect]
     Indication: KIDNEY TRANSPLANT REJECTION
     Route: 048
     Dates: start: 20081109, end: 20081109
  3. MEDROL /00049601/ [Suspect]
     Indication: PRODUCT USED FOR UNKNOWN INDICATION

REACTIONS (3)
  - Respiratory distress [None]
  - Pneumothorax [None]
  - Sepsis [None]
